FAERS Safety Report 6548879-1 (Version None)
Quarter: 2010Q1

REPORT INFORMATION
  Report Type: 
  Country: None (occurrence: None)
  Receive Date: 20100125
  Receipt Date: 20100120
  Transmission Date: 20100710
  Serious: Yes (Hospitalization)
  Sender: FDA-Public Use
  Company Number: US-ASTRAZENECA-2007UW05572

PATIENT
  Age: 57 Year
  Sex: Female
  Weight: 84.4 kg

DRUGS (28)
  1. SEROQUEL [Suspect]
     Indication: DEPRESSION
     Dosage: 25 MG TO 100 MG, 400 MG
     Route: 048
     Dates: start: 20000101, end: 20050101
  2. SEROQUEL [Suspect]
     Dosage: 25 MG - 100 MG
     Route: 048
     Dates: start: 20000809
  3. ZYPREXA [Concomitant]
  4. CLONAZEPAM [Concomitant]
     Dosage: 0.5 MG - 1 MG
     Route: 065
  5. BUSPAR [Concomitant]
     Dosage: 15 MG - 30 MG
     Route: 065
  6. PROZAC [Concomitant]
     Route: 065
  7. ZOCOR [Concomitant]
     Route: 048
  8. ACCURETIC [Concomitant]
     Dosage: 10 MG/12.5 MG
     Route: 065
  9. CELEBREX [Concomitant]
     Dosage: 100 MG - 200 MG
     Route: 048
  10. PAXIL [Concomitant]
     Route: 065
  11. PRILOSEC [Concomitant]
     Route: 048
  12. EFFEXOR [Concomitant]
     Dosage: 150 MG TWO CAPS EVERY MORNING
     Route: 065
  13. RISPERDAL [Concomitant]
     Dosage: 0.5 MG - 1 MG
     Route: 065
     Dates: start: 20010401, end: 20010501
  14. ALPRAZOLAM [Concomitant]
     Dosage: 0.5 MG - 1 MG
     Route: 065
  15. CIMETIDINE [Concomitant]
     Dosage: 400 MG TWO TABLETS DAILY
     Route: 065
  16. LESCOL [Concomitant]
     Route: 065
  17. VIOXX [Concomitant]
     Route: 048
  18. AMITRIPTYLINE HCL [Concomitant]
     Route: 048
  19. PROTONIX [Concomitant]
     Route: 048
  20. CITALOPRAM HYDROBROMIDE [Concomitant]
     Dosage: 20 MG - 40 MG
     Route: 065
  21. ALTACE [Concomitant]
     Dosage: 1.25 MG - 5 MG
     Route: 048
  22. CRESTOR [Concomitant]
     Dosage: 10 MG - 20 MG
     Route: 048
  23. METOPROLOL TARTRATE [Concomitant]
     Dosage: 12.5 MG - 25 MG
     Route: 065
  24. METFORMIN [Concomitant]
     Route: 048
  25. LISINOPRIL [Concomitant]
     Route: 065
  26. WARFARIN [Concomitant]
     Dosage: 2 MG - 4 MG
     Route: 048
  27. ASPIRIN [Concomitant]
     Route: 048
  28. INSULIN [Concomitant]
     Route: 065

REACTIONS (4)
  - DIABETES MELLITUS [None]
  - LOWER LIMB FRACTURE [None]
  - MENTAL DISORDER [None]
  - TYPE 2 DIABETES MELLITUS [None]
